FAERS Safety Report 25547926 (Version 1)
Quarter: 2025Q3

REPORT INFORMATION
  Report Type: Spontaneous
  Country: EU (occurrence: EU)
  Receive Date: 20250714
  Receipt Date: 20250714
  Transmission Date: 20251021
  Serious: Yes (Death, Life-Threatening, Other)
  Sender: Pyros Pharmaceuticals
  Company Number: EU-PYROS PHARMACEUTICALS, INC-20250600984

PATIENT
  Sex: Female

DRUGS (1)
  1. VIGABATRIN [Suspect]
     Active Substance: VIGABATRIN
     Indication: Epilepsy
     Route: 065

REACTIONS (2)
  - Aspiration [Fatal]
  - Hypotonia [Unknown]
